FAERS Safety Report 25152191 (Version 2)
Quarter: 2025Q2

REPORT INFORMATION
  Report Type: Spontaneous
  Country: DE (occurrence: DE)
  Receive Date: 20250402
  Receipt Date: 20250422
  Transmission Date: 20250716
  Serious: Yes (Hospitalization)
  Sender: BIOMARIN
  Company Number: DE-BIOMARINAP-DE-2025-164939

PATIENT

DRUGS (2)
  1. PALYNZIQ [Suspect]
     Active Substance: PEGVALIASE-PQPZ
     Indication: Phenylketonuria
     Dosage: 20 MILLIGRAM, QD
     Route: 058
  2. PALYNZIQ [Suspect]
     Active Substance: PEGVALIASE-PQPZ
     Route: 058
     Dates: start: 20241217

REACTIONS (1)
  - Generalised tonic-clonic seizure [Recovered/Resolved with Sequelae]

NARRATIVE: CASE EVENT DATE: 20250329
